FAERS Safety Report 4791496-4 (Version None)
Quarter: 2005Q4

REPORT INFORMATION
  Report Type: 
  Country: None (occurrence: None)
  Receive Date: 20051007
  Receipt Date: 20041101
  Transmission Date: 20060501
  Serious: No
  Sender: FDA-Public Use
  Company Number: US-BRISTOL-MYERS SQUIBB COMPANY-12754065

PATIENT
  Sex: Female

DRUGS (2)
  1. AVAPRO [Suspect]
     Dosage: ONGOING FOR 1-2 YEARS
     Route: 048
  2. HERBAL PREPARATION [Concomitant]

REACTIONS (1)
  - SWELLING [None]
